FAERS Safety Report 6034769-X (Version None)
Quarter: 2009Q1

REPORT INFORMATION
  Report Type: 
  Country: None (occurrence: None)
  Receive Date: 20090112
  Receipt Date: 20090105
  Transmission Date: 20090719
  Serious: Yes (Hospitalization)
  Sender: FDA-Public Use
  Company Number: FR-ELI_LILLY_AND_COMPANY-FR200809006672

PATIENT
  Age: 78 Year
  Sex: Female
  Weight: 57 kg

DRUGS (6)
  1. EVISTA [Suspect]
     Indication: OSTEOPOROSIS
     Dosage: 60 MG, DAILY (1/D)
     Route: 048
     Dates: start: 20050901
  2. DISOPYRAMIDE [Concomitant]
     Dosage: 1 D/F, EACH MORNING
     Route: 065
  3. COAPROVEL [Concomitant]
     Dosage: UNK, UNKNOWN
     Route: 065
  4. IDEOS [Concomitant]
     Dosage: UNK, UNKNOWN
     Route: 065
  5. TAHOR [Concomitant]
     Dosage: 1 D/F, UNKNOWN
     Route: 065
  6. TEMESTA [Concomitant]
     Dosage: 1 D/F, EACH EVENING
     Route: 065

REACTIONS (3)
  - CEREBROVASCULAR ACCIDENT [None]
  - DIVERTICULUM [None]
  - INTESTINAL OBSTRUCTION [None]
